FAERS Safety Report 5279407-9 (Version None)
Quarter: 2007Q1

REPORT INFORMATION
  Report Type: 
  Country: None (occurrence: None)
  Receive Date: 20070328
  Receipt Date: 20070313
  Transmission Date: 20070707
  Serious: Yes (Hospitalization, Other)
  Sender: FDA-Public Use
  Company Number: DE-SHR-DE-2006-041608

PATIENT
  Age: 35 Year
  Sex: Male
  Weight: 74 kg

DRUGS (1)
  1. BETASERON [Suspect]
     Indication: MULTIPLE SCLEROSIS
     Route: 058
     Dates: start: 20020101

REACTIONS (7)
  - ERYTHEMA [None]
  - INFECTION [None]
  - INJECTION SITE INDURATION [None]
  - INJECTION SITE SWELLING [None]
  - LEUKOCYTOCLASTIC VASCULITIS [None]
  - PAIN [None]
  - SLEEP DISORDER [None]
